FAERS Safety Report 6651387-0 (Version None)
Quarter: 2010Q1

REPORT INFORMATION
  Report Type: 
  Country: None (occurrence: None)
  Receive Date: 20100325
  Receipt Date: 20100317
  Transmission Date: 20100710
  Serious: Yes (Hospitalization)
  Sender: FDA-Public Use
  Company Number: AT-ROCHE-662882

PATIENT
  Sex: Female
  Weight: 52 kg

DRUGS (5)
  1. TRASTUZUMAB [Suspect]
     Indication: BREAST CANCER
     Dosage: FORM: VIAL; LAST DOSE PRIOR TO SAE: 02 OCTOBER 2009, DOSE LEVEL: 6 MG/KG
     Route: 042
     Dates: start: 20090818
  2. DOCETAXEL [Suspect]
     Indication: BREAST CANCER
     Dosage: FORM: VIAL; LAST DOSE PRIOR TO SAE: 02 OCTOBER 2009 (DOSE LEVEL : 60G/M2), PERMANENTLY DISCONTINUED,
     Route: 042
     Dates: start: 20090818, end: 20091118
  3. CARBOPLATIN [Suspect]
     Indication: BREAST CANCER
     Dosage: FORM: VIAL; LAST DOSE PRIOR TO SAE: 02 OCTOBER 2009;DOSE LEVEL: 5 AUC, PERMANENTLY DISCONTINUED
     Route: 042
     Dates: start: 20090818, end: 20091118
  4. PANTOPRAZOLE [Concomitant]
     Dates: start: 20090818
  5. FEMARA [Concomitant]
     Dates: start: 20090801

REACTIONS (2)
  - PANCYTOPENIA [None]
  - THROMBOCYTOPENIA [None]
